FAERS Safety Report 16458738 (Version 1)
Quarter: 2019Q2

REPORT INFORMATION
  Report Type: Spontaneous
  Country: US (occurrence: US)
  Receive Date: 20190620
  Receipt Date: 20190620
  Transmission Date: 20190711
  Serious: No
  Sender: FDA-Public Use
  Company Number: US-THERAPEUTICSMD-2019TMD00736

PATIENT
  Age: 55 Year
  Sex: Female
  Weight: 62.59 kg

DRUGS (5)
  1. IMVEXXY [Suspect]
     Active Substance: ESTRADIOL
     Indication: VULVOVAGINAL DRYNESS
     Dosage: 10 ?G, 2X/WEEK (BOTH BEFORE BED AND REMAINED UPRIGHT; MOSTLY BEFORE BED)
     Route: 067
     Dates: start: 20180809, end: 2018
  2. IMVEXXY [Suspect]
     Active Substance: ESTRADIOL
     Dosage: 10 ?G, LESS THAN A WEEK APART (NOT TWICE A WEEK)
     Route: 067
     Dates: start: 2018, end: 2018
  3. LORAZEPAM (LEADING PHARMA) [Concomitant]
  4. GENERIC UNSPECIFIED ANTIDEPRESSANT [Concomitant]
  5. IMVEXXY [Suspect]
     Active Substance: ESTRADIOL
     Dosage: 10 ?G, 1X/MONTH
     Route: 067
     Dates: start: 2018, end: 2018

REACTIONS (3)
  - Intentional product misuse [Recovered/Resolved]
  - Off label use [Recovered/Resolved]
  - Memory impairment [Recovering/Resolving]

NARRATIVE: CASE EVENT DATE: 2018
